FAERS Safety Report 7558296-3 (Version None)
Quarter: 2011Q2

REPORT INFORMATION
  Report Type: 
  Country: None (occurrence: None)
  Receive Date: 20110620
  Receipt Date: 20110609
  Transmission Date: 20111010
  Serious: Yes (Hospitalization)
  Sender: FDA-Public Use
  Company Number: US-UCBSA-024907

PATIENT
  Sex: Female
  Weight: 90.7 kg

DRUGS (15)
  1. PREDNISONE [Concomitant]
     Indication: CROHN'S DISEASE
     Dates: start: 20100104
  2. METHOTREXATE [Concomitant]
     Indication: CROHN'S DISEASE
     Dates: start: 20100224
  3. VITAMIN B-12 [Concomitant]
     Dosage: MONTHLY
  4. CIMZIA [Suspect]
     Indication: CROHN'S DISEASE
     Route: 058
     Dates: start: 20100609, end: 20100623
  5. CALCIUM 1200MG PLUS VITAMIN [Concomitant]
  6. CIMZIA [Suspect]
     Route: 058
     Dates: start: 20100730
  7. PROMETHAZINE HCL [Concomitant]
     Indication: NAUSEA
     Dosage: Q6H
     Route: 048
  8. FOLIC ACID [Concomitant]
     Dosage: DAILY
     Route: 048
  9. KEFLEX [Suspect]
     Indication: URINARY TRACT INFECTION
  10. MULTI-VITAMIN [Concomitant]
     Route: 048
  11. EFFEXOR [Concomitant]
     Dosage: DAILY
     Route: 048
  12. BONIVA [Concomitant]
     Dosage: MONTHLY
     Route: 048
  13. DIPHENOXYLATE HCL + ATROPINE SULFATE [Concomitant]
     Indication: CROHN'S DISEASE
  14. PROMETHAZINE HCL [Concomitant]
     Indication: VOMITING
     Dosage: Q6H
     Route: 048
  15. EFFEXOR XR [Concomitant]
     Dosage: DAILY
     Route: 048

REACTIONS (1)
  - CLOSTRIDIUM DIFFICILE COLITIS [None]
